FAERS Safety Report 14415077 (Version 1)
Quarter: 2018Q1

REPORT INFORMATION
  Report Type: Spontaneous
  Country: US (occurrence: US)
  Receive Date: 20180118
  Receipt Date: 20180118
  Transmission Date: 20180509
  Serious: No
  Sender: FDA-Public Use
  Company Number: None

PATIENT
  Age: 67 Year
  Sex: Female

DRUGS (17)
  1. ONDANSETRON [Concomitant]
     Active Substance: ONDANSETRON
  2. SODIUM CHLORIDE. [Concomitant]
     Active Substance: SODIUM CHLORIDE
  3. VORICONAZOLE. [Concomitant]
     Active Substance: VORICONAZOLE
  4. LIDOCAINE. [Concomitant]
     Active Substance: LIDOCAINE
  5. CETIRIZINE [Concomitant]
     Active Substance: CETIRIZINE HYDROCHLORIDE
  6. CHLORHEXADINE [Concomitant]
     Active Substance: CHLORHEXIDINE
  7. ZINC OXIDE. [Suspect]
     Active Substance: ZINC OXIDE
  8. MIRTAZAPINE. [Concomitant]
     Active Substance: MIRTAZAPINE
  9. DEXAMETHASONE. [Concomitant]
     Active Substance: DEXAMETHASONE
  10. MEROPENEM. [Concomitant]
     Active Substance: MEROPENEM
  11. NYSTATIN. [Concomitant]
     Active Substance: NYSTATIN
  12. ENASIDENIB [Suspect]
     Active Substance: ENASIDENIB
     Indication: LEUKAEMIA
     Route: 048
     Dates: start: 20171206
  13. PROCHLORPERAZINE. [Concomitant]
     Active Substance: PROCHLORPERAZINE
  14. VANCOMYCIN [Concomitant]
     Active Substance: VANCOMYCIN
  15. ALLOPURINOL. [Concomitant]
     Active Substance: ALLOPURINOL
  16. AMLODIPINE [Concomitant]
     Active Substance: AMLODIPINE BESYLATE
  17. TRAMADOL. [Concomitant]
     Active Substance: TRAMADOL

REACTIONS (4)
  - Tachypnoea [None]
  - Hypoxia [None]
  - Pyrexia [None]
  - Pleural effusion [None]

NARRATIVE: CASE EVENT DATE: 20171220
